FAERS Safety Report 10205604 (Version 2)
Quarter: 2014Q2

REPORT INFORMATION
  Report Type: Spontaneous
  Country: GB (occurrence: GB)
  Receive Date: 20140529
  Receipt Date: 20140529
  Transmission Date: 20141212
  Serious: Yes (Other)
  Sender: FDA-Public Use
  Company Number: GB-009507513-1305GBR016826

PATIENT
  Age: 35 Year
  Sex: Female

DRUGS (2)
  1. IMPLANON [Suspect]
     Dosage: UNK
     Route: 059
     Dates: start: 20100913, end: 20130525
  2. AMOXICILLIN [Concomitant]
     Dosage: UNK
     Dates: start: 201009

REACTIONS (3)
  - Caesarean section [Unknown]
  - Unintended pregnancy [Recovered/Resolved]
  - Malaise [Unknown]
